FAERS Safety Report 25836980 (Version 2)
Quarter: 2025Q4

REPORT INFORMATION
  Report Type: Spontaneous
  Country: AR (occurrence: AR)
  Receive Date: 20250923
  Receipt Date: 20251001
  Transmission Date: 20260118
  Serious: Yes (Other)
  Sender: MYLAN
  Company Number: AR-MYLANLABS-2025M1079282

PATIENT
  Age: 21 Year
  Sex: Male

DRUGS (4)
  1. CLOZAPINE [Suspect]
     Active Substance: CLOZAPINE
     Indication: Product used for unknown indication
     Dosage: UNK, BID (125 MG IN THE MORNING AND 225 MG AT NIGHT)
     Dates: start: 20220924
  2. METHYLPHENIDATE [Concomitant]
     Active Substance: METHYLPHENIDATE
     Dosage: 92 MILLIGRAM, QD
  3. MODAFINIL [Concomitant]
     Active Substance: MODAFINIL
     Dosage: 200 MILLIGRAM, QD
  4. VORTIOXETINE [Concomitant]
     Active Substance: VORTIOXETINE
     Dosage: 5 MILLIGRAM, QD (FOR THE PAST 2 MONTHS)
     Dates: start: 2025

REACTIONS (2)
  - Neutropenia [Recovered/Resolved]
  - White blood cell count abnormal [Recovered/Resolved]

NARRATIVE: CASE EVENT DATE: 20250915
